FAERS Safety Report 5536364-5 (Version None)
Quarter: 2007Q4

REPORT INFORMATION
  Report Type: 
  Country: None (occurrence: None)
  Receive Date: 20071206
  Receipt Date: 20071126
  Transmission Date: 20080405
  Serious: Yes (Other)
  Sender: FDA-Public Use
  Company Number: US-AMGEN-QUU254039

PATIENT
  Sex: Female

DRUGS (2)
  1. ENBREL [Suspect]
     Indication: ANKYLOSING SPONDYLITIS
     Dates: start: 20030901, end: 20061101
  2. METHOTREXATE [Concomitant]

REACTIONS (12)
  - BONE PAIN [None]
  - BONE SCAN ABNORMAL [None]
  - CONGENITAL CYSTIC KIDNEY DISEASE [None]
  - HEADACHE [None]
  - INSOMNIA [None]
  - OSTEOARTHRITIS [None]
  - PARAESTHESIA [None]
  - POLYCYSTIC LIVER DISEASE [None]
  - POLYNEUROPATHY [None]
  - ROTATOR CUFF SYNDROME [None]
  - TREMOR [None]
  - WEIGHT DECREASED [None]
